FAERS Safety Report 12432629 (Version 1)
Quarter: 2016Q2

REPORT INFORMATION
  Report Type: Spontaneous
  Country: US (occurrence: None)
  Receive Date: 20160602
  Receipt Date: 20160602
  Transmission Date: 20160815
  Serious: No
  Sender: FDA-Public Use
  Company Number: None

PATIENT
  Age: 62 Year
  Sex: Female
  Weight: 68.04 kg

DRUGS (6)
  1. RESTASTIS [Concomitant]
  2. REFRESH [Concomitant]
     Active Substance: UNSPECIFIED INGREDIENT
  3. IRON [Concomitant]
     Active Substance: IRON
  4. FOLIC ACID. [Concomitant]
     Active Substance: FOLIC ACID
  5. BACITRACIN ZINC AND POLYMYCIN B SULFATE [Suspect]
     Active Substance: BACITRACIN ZINC\POLYMYXIN B SULFATE
     Indication: BLEPHARITIS
     Route: 047
     Dates: start: 20160520, end: 20160523
  6. MULTIVIT [Concomitant]
     Active Substance: VITAMINS

REACTIONS (1)
  - Eye irritation [None]

NARRATIVE: CASE EVENT DATE: 20160520
